FAERS Safety Report 9736182 (Version 2)
Quarter: 2013Q4

REPORT INFORMATION
  Report Type: Report from Study
  Country: CA (occurrence: CA)
  Receive Date: 20131206
  Receipt Date: 20131206
  Transmission Date: 20140711
  Serious: Yes (Other)
  Sender: FDA-Public Use
  Company Number: CA-ROCHE-1236245

PATIENT
  Age: 56 Year
  Sex: Male
  Weight: 84 kg

DRUGS (4)
  1. ACTEMRA [Suspect]
     Indication: RHEUMATOID ARTHRITIS
     Route: 042
     Dates: start: 20130530
  2. ACTEMRA [Suspect]
     Route: 042
     Dates: start: 20130627, end: 20131115
  3. PREDNISONE [Concomitant]
  4. ZOPICLONE [Concomitant]

REACTIONS (7)
  - Pain in extremity [Recovered/Resolved]
  - Rheumatoid arthritis [Recovering/Resolving]
  - Haemoptysis [Unknown]
  - Drug ineffective [Unknown]
  - Dysgeusia [Unknown]
  - Wound [Recovered/Resolved]
  - Wound [Recovering/Resolving]
